FAERS Safety Report 4286999-5 (Version None)
Quarter: 2004Q1

REPORT INFORMATION
  Report Type: 
  Country: None (occurrence: None)
  Receive Date: 20040204
  Receipt Date: 20040121
  Transmission Date: 20041129
  Serious: No
  Sender: FDA-Public Use
  Company Number: 2004AP00315

PATIENT
  Age: 74 Year
  Sex: Female

DRUGS (7)
  1. IRESSA [Suspect]
     Indication: LUNG ADENOCARCINOMA
     Dosage: 250 MG DAILY PO
     Route: 048
     Dates: start: 20031024, end: 20031224
  2. IRESSA [Suspect]
     Indication: NON-SMALL CELL LUNG CANCER
     Dosage: 250 MG DAILY PO
     Route: 048
     Dates: start: 20031024, end: 20031224
  3. ATACAND [Concomitant]
  4. EMCONCOR [Concomitant]
  5. PLAVIX [Concomitant]
  6. GLUCOFAGE [Concomitant]
  7. MESULID [Concomitant]

REACTIONS (2)
  - HEPATORENAL FAILURE [None]
  - NEPHRITIS [None]
